FAERS Safety Report 5123152-7 (Version None)
Quarter: 2006Q4

REPORT INFORMATION
  Report Type: 
  Country: None (occurrence: None)
  Receive Date: 20061005
  Receipt Date: 20060926
  Transmission Date: 20070319
  Serious: Yes (Hospitalization)
  Sender: FDA-Public Use
  Company Number: THYR-10353

PATIENT
  Age: 67 Year
  Sex: Female

DRUGS (7)
  1. THYROGEN [Suspect]
     Dosage: 0.9 MG ONCE IM
     Route: 030
     Dates: start: 20060925, end: 20060928
  2. SYNTHROID [Concomitant]
  3. BENICAR [Concomitant]
  4. OXYCONTIN [Concomitant]
  5. REGLAN [Concomitant]
  6. NAPROSYN [Concomitant]
  7. LIDODERM [Concomitant]

REACTIONS (3)
  - FEELING HOT [None]
  - INSOMNIA [None]
  - PAIN IN EXTREMITY [None]
